FAERS Safety Report 9704915 (Version 2)
Quarter: 2013Q4

REPORT INFORMATION
  Report Type: Not Available
  Country: US (occurrence: US)
  Receive Date: 20131122
  Receipt Date: 20131122
  Transmission Date: 20140711
  Serious: No
  Sender: FDA-Public Use
  Company Number: US-AMARIN PHARMA, INC.-2013AMR000013

PATIENT
  Sex: Female

DRUGS (3)
  1. VASCEPA [Suspect]
     Indication: VEIN DISORDER
  2. EDARBI [Concomitant]
     Indication: HYPERTENSION
  3. LIVALO [Concomitant]
     Indication: PRODUCT USED FOR UNKNOWN INDICATION

REACTIONS (1)
  - Drug intolerance [None]
